FAERS Safety Report 6726580-9 (Version None)
Quarter: 2010Q2

REPORT INFORMATION
  Report Type: 
  Country: None (occurrence: None)
  Receive Date: 20100514
  Receipt Date: 20100503
  Transmission Date: 20101027
  Serious: Yes (Other)
  Sender: FDA-Public Use
  Company Number: US-ELI_LILLY_AND_COMPANY-US201004002264

PATIENT
  Age: 25 Year
  Sex: Male

DRUGS (3)
  1. CYMBALTA [Suspect]
     Indication: DEPRESSION
     Dosage: 30 MG, UNK
  2. XYZAL [Concomitant]
     Indication: HYPERSENSITIVITY
  3. PHENERGAN [Concomitant]
     Indication: NAUSEA

REACTIONS (4)
  - DYSPNOEA [None]
  - HEART RATE INCREASED [None]
  - NAUSEA [None]
  - THROAT TIGHTNESS [None]
